FAERS Safety Report 10258614 (Version 1)
Quarter: 2014Q2

REPORT INFORMATION
  Report Type: Report from Study
  Country: CA (occurrence: CA)
  Receive Date: 20140625
  Receipt Date: 20140625
  Transmission Date: 20141212
  Serious: Yes (Death)
  Sender: FDA-Public Use
  Company Number: CA-BRISTOL-MYERS SQUIBB COMPANY-21075940

PATIENT
  Age: 57 Year
  Sex: Female

DRUGS (7)
  1. ORENCIA FOR INJ [Suspect]
     Indication: RHEUMATOID ARTHRITIS
     Route: 042
     Dates: start: 20090514
  2. PREDNISONE [Concomitant]
  3. CELEBREX [Concomitant]
  4. CALCIUM [Concomitant]
  5. IRON [Concomitant]
  6. LASIX [Concomitant]
  7. METFORMIN [Concomitant]

REACTIONS (1)
  - Myocardial infarction [Fatal]
